FAERS Safety Report 6399234-9 (Version None)
Quarter: 2009Q4

REPORT INFORMATION
  Report Type: 
  Country: None (occurrence: None)
  Receive Date: 20091014
  Receipt Date: 20070926
  Transmission Date: 20100525
  Serious: Yes (Other)
  Sender: FDA-Public Use
  Company Number: US-ASTRAZENECA-2006UW22058

PATIENT
  Sex: Female
  Weight: 100.2 kg

DRUGS (8)
  1. SEROQUEL [Suspect]
     Indication: INSOMNIA
     Route: 048
     Dates: start: 20050415, end: 20060101
  2. ASPIRIN [Concomitant]
     Dates: start: 20020101
  3. PRILOSEC [Concomitant]
     Dates: start: 20050324
  4. LISINOPRIL [Concomitant]
     Route: 048
     Dates: start: 20050415
  5. LIPITOR [Concomitant]
     Route: 048
     Dates: start: 20050415
  6. KEPPRA [Concomitant]
     Route: 048
     Dates: start: 20050324
  7. TYLENOL (CAPLET) [Concomitant]
     Indication: TOOTHACHE
     Dosage: 1-2 AT BEDTIME
     Dates: start: 20020101
  8. TYLENOL (CAPLET) [Concomitant]
     Indication: DISCOMFORT
     Dosage: 1-2 AT BEDTIME
     Dates: start: 20020101

REACTIONS (2)
  - CEREBROVASCULAR ACCIDENT [None]
  - DIABETES MELLITUS [None]
